FAERS Safety Report 9185815 (Version 1)
Quarter: 2013Q1

REPORT INFORMATION
  Report Type: Spontaneous
  Country: US (occurrence: US)
  Receive Date: 20130325
  Receipt Date: 20130325
  Transmission Date: 20140127
  Serious: Yes (Hospitalization)
  Sender: FDA-Public Use
  Company Number: US-AMGEN-USASP2013018927

PATIENT
  Age: 65 Year
  Sex: Female

DRUGS (1)
  1. ENBREL [Suspect]
     Indication: PSORIASIS
     Dosage: 50 MG, 2 TIMES/WK
     Dates: start: 20120928, end: 201212

REACTIONS (4)
  - Dyspnoea [Recovered/Resolved]
  - Respiratory tract congestion [Not Recovered/Not Resolved]
  - Chest discomfort [Not Recovered/Not Resolved]
  - Oropharyngeal pain [Not Recovered/Not Resolved]
